FAERS Safety Report 17153710 (Version 3)
Quarter: 2020Q2

REPORT INFORMATION
  Report Type: Spontaneous
  Country: HU (occurrence: HU)
  Receive Date: 20191213
  Receipt Date: 20200515
  Transmission Date: 20200713
  Serious: Yes (Hospitalization, Other)
  Sender: FDA-Public Use
  Company Number: HU-BAYER-2019-219822

PATIENT
  Sex: Male

DRUGS (4)
  1. MODERIBA [Concomitant]
     Active Substance: RIBAVIRIN
     Dosage: 2X2 TABL
  2. EPCLUSA [Concomitant]
     Active Substance: SOFOSBUVIR\VELPATASVIR
     Dosage: 1X1 TABL
  3. STIVARGA [Suspect]
     Active Substance: REGORAFENIB
     Indication: HEPATOCELLULAR CARCINOMA
     Dosage: UNK
     Dates: start: 201801
  4. BARACLUDE [Concomitant]
     Active Substance: ENTECAVIR
     Indication: HEPATITIS B
     Dosage: 1X1 TABL
     Dates: start: 20181107

REACTIONS (6)
  - Kidney enlargement [None]
  - Ureteric dilatation [None]
  - Diverticulitis [None]
  - Psoas abscess [Recovered/Resolved with Sequelae]
  - Psoas abscess [None]
  - Renal disorder [None]

NARRATIVE: CASE EVENT DATE: 20190730
